FAERS Safety Report 9374401 (Version 2)
Quarter: 2013Q3

REPORT INFORMATION
  Report Type: Report from Study
  Country: US (occurrence: US)
  Receive Date: 20130628
  Receipt Date: 20130819
  Transmission Date: 20140515
  Serious: Yes (Hospitalization)
  Sender: FDA-Public Use
  Company Number: PHEH2013US013754

PATIENT
  Sex: Male
  Weight: 73.92 kg

DRUGS (2)
  1. MYFORTIC [Suspect]
     Dosage: 360 MG (2 BID)
     Route: 048
  2. MYFORTIC [Suspect]
     Dosage: 720 MG, BID
     Route: 048

REACTIONS (6)
  - Dyspnoea [Unknown]
  - Weight decreased [Unknown]
  - Fatigue [Unknown]
  - Cough [Unknown]
  - Local swelling [Unknown]
  - Pain [Unknown]
